FAERS Safety Report 19743082 (Version 4)
Quarter: 2022Q3

REPORT INFORMATION
  Report Type: Report from Study
  Country: DE (occurrence: DE)
  Receive Date: 20210824
  Receipt Date: 20220804
  Transmission Date: 20221026
  Serious: Yes (Other)
  Sender: FDA-Public Use
  Company Number: DE-002147023-NVSC2020DE004903

PATIENT

DRUGS (8)
  1. RUXOLITINIB [Suspect]
     Active Substance: RUXOLITINIB
     Indication: Primary myelofibrosis
     Dosage: 20 MG, BID
     Route: 048
     Dates: start: 20190213
  2. RUXOLITINIB [Suspect]
     Active Substance: RUXOLITINIB
     Dosage: 10 MG, BID
     Route: 048
     Dates: start: 20190727
  3. EXJADE [Suspect]
     Active Substance: DEFERASIROX
     Indication: Hyperferritinaemia
     Dosage: 720 MG, QD (IN THE MORNING)
     Route: 048
     Dates: start: 20190306
  4. DEFERASIROX [Concomitant]
     Active Substance: DEFERASIROX
     Indication: Hyperferritinaemia
     Dosage: 720 MG, PER DAY
     Route: 065
     Dates: start: 20190306
  5. SPIRONOLACTONE [Concomitant]
     Active Substance: SPIRONOLACTONE
     Indication: Ascites
     Dosage: UNK, PER DAY
     Route: 065
     Dates: end: 20190925
  6. SPIRONOLACTONE [Concomitant]
     Active Substance: SPIRONOLACTONE
     Dosage: 50 MG, PER DAY
     Route: 065
     Dates: start: 20190926
  7. TORSEMIDE [Concomitant]
     Active Substance: TORSEMIDE
     Indication: Ascites
     Dosage: UNK, PER DAY
     Route: 065
     Dates: end: 20190925
  8. TORSEMIDE [Concomitant]
     Active Substance: TORSEMIDE
     Dosage: 20 MG, PER DAY
     Route: 065
     Dates: start: 20190926

REACTIONS (2)
  - Haemorrhage [Unknown]
  - Thrombocytopenia [Recovered/Resolved]

NARRATIVE: CASE EVENT DATE: 20190819
